FAERS Safety Report 4432266-6 (Version None)
Quarter: 2004Q3

REPORT INFORMATION
  Report Type: 
  Country: None (occurrence: None)
  Receive Date: 20040825
  Receipt Date: 20040818
  Transmission Date: 20050211
  Serious: Yes (Other)
  Sender: FDA-Public Use
  Company Number: DE-MERCK-0408DEU00159

PATIENT
  Age: 5 Year
  Sex: Female

DRUGS (3)
  1. COSMEGEN [Suspect]
     Indication: RHABDOMYOSARCOMA
     Route: 042
     Dates: start: 20000101, end: 20000101
  2. IFOSFAMIDE [Suspect]
     Indication: RHABDOMYOSARCOMA
     Route: 042
     Dates: start: 20000101, end: 20000101
  3. VINCRISTINE SULFATE [Suspect]
     Indication: RHABDOMYOSARCOMA
     Route: 042
     Dates: start: 20000101, end: 20000101

REACTIONS (4)
  - ALOPECIA [None]
  - BONE MARROW TOXICITY [None]
  - MUCOSAL INFLAMMATION [None]
  - VOMITING [None]
